FAERS Safety Report 9062423 (Version 4)
Quarter: 2013Q1

REPORT INFORMATION
  Report Type: Report from Study
  Country: CA (occurrence: CA)
  Receive Date: 20130212
  Receipt Date: 20130319
  Transmission Date: 20140127
  Serious: Yes (Other)
  Sender: FDA-Public Use
  Company Number: CA-ROCHE-1113436

PATIENT
  Age: 67 None
  Sex: Female
  Weight: 77 kg

DRUGS (11)
  1. ACTEMRA [Suspect]
     Indication: RHEUMATOID ARTHRITIS
     Route: 065
     Dates: start: 20101025
  2. ACTEMRA [Suspect]
     Route: 065
     Dates: start: 20110124
  3. ACTEMRA [Suspect]
     Route: 065
     Dates: start: 20121025
  4. PREDNISONE [Suspect]
     Indication: PRODUCT USED FOR UNKNOWN INDICATION
     Route: 065
  5. FOLIC ACID [Concomitant]
  6. AVAPRO [Concomitant]
  7. INDAPAMIDE [Concomitant]
  8. EFFEXOR [Concomitant]
  9. METHOTREXATE [Concomitant]
  10. PREDNISONE [Concomitant]
  11. SIMVASTATIN [Concomitant]

REACTIONS (10)
  - Spinal compression fracture [Not Recovered/Not Resolved]
  - Bone loss [Not Recovered/Not Resolved]
  - Rheumatoid arthritis [Unknown]
  - Arthropathy [Unknown]
  - Urinary tract infection [Not Recovered/Not Resolved]
  - Fungal infection [Not Recovered/Not Resolved]
  - Nausea [Unknown]
  - Cold sweat [Unknown]
  - Arthropathy [Unknown]
  - Drug ineffective [Unknown]
